FAERS Safety Report 9906618 (Version 1)
Quarter: 2014Q1

REPORT INFORMATION
  Report Type: Spontaneous
  Country: IT (occurrence: IT)
  Receive Date: 20140218
  Receipt Date: 20140218
  Transmission Date: 20141002
  Serious: Yes (Hospitalization)
  Sender: FDA-Public Use
  Company Number: IT-TEVA-461542ISR

PATIENT
  Age: 66 Year
  Sex: Male
  Weight: 61 kg

DRUGS (2)
  1. CARBOPLATINO TEVA [Suspect]
     Indication: LUNG CANCER METASTATIC
     Dosage: 750 MILLIGRAM DAILY;
     Route: 042
     Dates: start: 20131121, end: 20140102
  2. PACLITAXEL MYLAN GENERICS [Suspect]
     Indication: LUNG CANCER METASTATIC
     Dosage: 280 MG/M2 DAILY;
     Route: 042
     Dates: start: 20131121, end: 20140102

REACTIONS (3)
  - Dyspnoea [Unknown]
  - Asthenia [Unknown]
  - Hypertensive crisis [Unknown]
